FAERS Safety Report 22290757 (Version 1)
Quarter: 2023Q2

REPORT INFORMATION
  Report Type: Report from Study
  Country: CA (occurrence: CA)
  Receive Date: 20230505
  Receipt Date: 20230505
  Transmission Date: 20230721
  Serious: Yes (Other)
  Sender: FDA-Public Use
  Company Number: CA-ABBVIE-21K-028-4197639-00

PATIENT
  Sex: Female

DRUGS (8)
  1. RINVOQ [Suspect]
     Active Substance: UPADACITINIB
     Indication: Rheumatoid arthritis
     Dosage: FORM STRENGTH : 15 MILLIGRAM
     Route: 048
     Dates: start: 20200311
  2. RINVOQ [Suspect]
     Active Substance: UPADACITINIB
     Indication: Rheumatoid arthritis
     Dosage: FORM STRENGTH : 15 MILLIGRAM
     Route: 048
  3. PREDNISONE [Suspect]
     Active Substance: PREDNISONE
     Indication: Product used for unknown indication
     Route: 065
     Dates: start: 2010
  4. PREDNISONE [Suspect]
     Active Substance: PREDNISONE
     Indication: Product used for unknown indication
     Route: 065
     Dates: start: 2022
  5. CORTEF [Suspect]
     Active Substance: HYDROCORTISONE
     Indication: Product used for unknown indication
     Dosage: 20MG EVERY MORNING AND 10MG IN THE AFTERNOON
     Route: 065
     Dates: start: 202111
  6. CORTEF [Suspect]
     Active Substance: HYDROCORTISONE
     Indication: Product used for unknown indication
     Dosage: 15MG EVERY MORNING AND 5MG IN THE AFTERNOON
     Route: 065
  7. CORTEF [Suspect]
     Active Substance: HYDROCORTISONE
     Indication: Product used for unknown indication
     Dosage: DOSE INCREASED
     Route: 065
  8. CORTEF [Suspect]
     Active Substance: HYDROCORTISONE
     Indication: Product used for unknown indication
     Route: 065
     Dates: start: 202201

REACTIONS (13)
  - Gastric haemorrhage [Unknown]
  - Sarcoidosis [Unknown]
  - Illness [Recovering/Resolving]
  - Pain [Recovering/Resolving]
  - Drug intolerance [Recovering/Resolving]
  - Adverse drug reaction [Unknown]
  - Diabetes mellitus [Recovering/Resolving]
  - Fatigue [Unknown]
  - Diarrhoea [Unknown]
  - Sinusitis [Unknown]
  - Anaemia [Unknown]
  - Osteoarthritis [Unknown]
  - Blood test abnormal [Unknown]

NARRATIVE: CASE EVENT DATE: 20220101
